FAERS Safety Report 17116491 (Version 3)
Quarter: 2020Q1

REPORT INFORMATION
  Report Type: Report from Study
  Country: US (occurrence: US)
  Receive Date: 20191205
  Receipt Date: 20200211
  Transmission Date: 20200409
  Serious: Yes (Hospitalization)
  Sender: FDA-Public Use
  Company Number: US-PFIZER INC-2019522656

PATIENT
  Age: 12 Year
  Sex: Male
  Weight: 44 kg

DRUGS (6)
  1. VINCRISTINE SULFATE. [Suspect]
     Active Substance: VINCRISTINE SULFATE
     Indication: B PRECURSOR TYPE ACUTE LEUKAEMIA
     Dosage: VARYING DOSE, MONTHLY
     Route: 042
     Dates: start: 20170216, end: 20191007
  2. MERCAPTOPURINE. [Suspect]
     Active Substance: MERCAPTOPURINE
     Indication: B PRECURSOR TYPE ACUTE LEUKAEMIA
     Dosage: DOSE VARIES BY DAY QD TABLET
     Route: 048
     Dates: start: 20170202, end: 20191019
  3. METHOTREXATE SODIUM. [Suspect]
     Active Substance: METHOTREXATE SODIUM
     Indication: B PRECURSOR TYPE ACUTE LEUKAEMIA
     Dosage: 15 MG, ONCE PER MAINTENANCE CYCLE
     Route: 037
     Dates: start: 20170202, end: 20190715
  4. INCB018424 [Suspect]
     Active Substance: RUXOLITINIB
     Indication: B PRECURSOR TYPE ACUTE LEUKAEMIA
     Dosage: 30 MG, 2X/DAY, TABLET
     Route: 048
     Dates: start: 20170202, end: 20191019
  5. PREDNISONE. [Suspect]
     Active Substance: PREDNISONE
     Indication: B PRECURSOR TYPE ACUTE LEUKAEMIA
     Dosage: 30 MG, QD FOR 5 DAYS EACH PHASE, TABLET
     Route: 048
     Dates: start: 20180521, end: 20190914
  6. INCB018424 [Suspect]
     Active Substance: RUXOLITINIB
     Dosage: 30 MG, 2X/DAY, TABLET
     Route: 048
     Dates: start: 20191020

REACTIONS (1)
  - Pneumonia [Recovered/Resolved]

NARRATIVE: CASE EVENT DATE: 20191019
